FAERS Safety Report 14005364 (Version 1)
Quarter: 2017Q3

REPORT INFORMATION
  Report Type: Spontaneous
  Country: BR (occurrence: BR)
  Receive Date: 20170922
  Receipt Date: 20170922
  Transmission Date: 20171128
  Serious: Yes (Other)
  Sender: FDA-Public Use
  Company Number: BR-PFIZER INC-2017406670

PATIENT
  Sex: Female

DRUGS (1)
  1. LYRICA [Suspect]
     Active Substance: PREGABALIN
     Indication: FIBROMYALGIA

REACTIONS (7)
  - Peripheral swelling [Unknown]
  - Skin discolouration [Unknown]
  - Pain in extremity [Unknown]
  - Pain [Unknown]
  - Hypokinesia [Unknown]
  - Paraesthesia [Unknown]
  - Condition aggravated [Unknown]
